FAERS Safety Report 10947703 (Version 1)
Quarter: 2015Q1

REPORT INFORMATION
  Report Type: Spontaneous
  Country: IT (occurrence: IT)
  Receive Date: 20150324
  Receipt Date: 20150324
  Transmission Date: 20150721
  Serious: Yes (Hospitalization)
  Sender: FDA-Public Use
  Company Number: IT-ROCHE-1552955

PATIENT
  Age: 76 Year
  Sex: Male

DRUGS (5)
  1. ROCEFIN [Suspect]
     Active Substance: CEFTRIAXONE SODIUM
     Indication: HYPERPYREXIA
     Route: 030
     Dates: start: 20150221, end: 20150223
  2. SEQUACOR [Concomitant]
     Active Substance: BISOPROLOL
     Route: 048
  3. CARDIOASPIRIN [Concomitant]
     Active Substance: ASPIRIN
     Dosage: 100 MG GASTRO-RESISTANT TABLETS 30 TABLETS
     Route: 048
  4. OMEPRAZEN [Concomitant]
     Active Substance: OMEPRAZOLE
     Dosage: ^20 MG HARD GASTRO-RESISTANT CAPSULES^
     Route: 048
  5. ESKIM [Concomitant]
     Active Substance: OMEGA-3 FATTY ACIDS
     Dosage: 1000 MG SOFT CAPSULES 20 CAPSULES
     Route: 048

REACTIONS (2)
  - Dermatitis bullous [Recovering/Resolving]
  - Scab [Recovering/Resolving]

NARRATIVE: CASE EVENT DATE: 20150223
